FAERS Safety Report 9006529 (Version 2)
Quarter: 2013Q1

REPORT INFORMATION
  Report Type: Report from Study
  Country: FR (occurrence: FR)
  Receive Date: 20130110
  Receipt Date: 20130207
  Transmission Date: 20140127
  Serious: Yes (Death, Hospitalization)
  Sender: FDA-Public Use
  Company Number: PHHO2012FR015715

PATIENT
  Age: 70 Year
  Sex: Female
  Weight: 68 kg

DRUGS (4)
  1. AMN107 [Suspect]
     Indication: MALIGNANT MELANOMA
     Dosage: 800 MG, QD
     Route: 048
     Dates: start: 20120810, end: 20121030
  2. PARACETAMOL [Concomitant]
     Dosage: 1 G, UNK
     Route: 048
  3. FORLAX [Concomitant]
     Route: 048
  4. SMECTA                             /00837601/ [Concomitant]
     Dosage: UNK
     Route: 048
     Dates: start: 20121004

REACTIONS (2)
  - Anaemia [Fatal]
  - Rectal haemorrhage [Fatal]
